FAERS Safety Report 15850312 (Version 9)
Quarter: 2020Q2

REPORT INFORMATION
  Report Type: Spontaneous
  Country: US (occurrence: US)
  Receive Date: 20190121
  Receipt Date: 20200629
  Transmission Date: 20200713
  Serious: No
  Sender: FDA-Public Use
  Company Number: US-PFIZER INC-2018393502

PATIENT
  Age: 75 Year
  Sex: Male
  Weight: 97.05 kg

DRUGS (4)
  1. LYRICA [Suspect]
     Active Substance: PREGABALIN
     Indication: NEUROPATHY PERIPHERAL
     Dosage: 200 MG, THREE TIMES A DAY
     Route: 048
     Dates: start: 20190108
  2. LYRICA [Suspect]
     Active Substance: PREGABALIN
     Indication: SPINAL OPERATION
  3. LYRICA [Suspect]
     Active Substance: PREGABALIN
     Indication: LUMBAR SPINAL STENOSIS
     Dosage: 200 MG, THREE TIMES A DAY
     Route: 048
     Dates: start: 20190709
  4. LYRICA [Suspect]
     Active Substance: PREGABALIN
     Indication: SPINAL CLAUDICATION

REACTIONS (6)
  - Gait disturbance [Unknown]
  - Dysgraphia [Unknown]
  - Malaise [Recovering/Resolving]
  - Speech disorder [Unknown]
  - Dysphonia [Unknown]
  - Product dose omission [Unknown]

NARRATIVE: CASE EVENT DATE: 20190712
